FAERS Safety Report 20887195 (Version 1)
Quarter: 2022Q2

REPORT INFORMATION
  Report Type: Spontaneous
  Country: US (occurrence: US)
  Receive Date: 20220528
  Receipt Date: 20220528
  Transmission Date: 20220721
  Serious: Yes (Other)
  Sender: FDA-Public Use
  Company Number: US-JNJFOC-20220545339

PATIENT
  Age: 62 Year
  Sex: Male

DRUGS (1)
  1. DURAGESIC [Suspect]
     Active Substance: FENTANYL
     Indication: Pain
     Route: 065

REACTIONS (6)
  - Medical device implantation [Unknown]
  - Hernia repair [Unknown]
  - Shoulder arthroplasty [Unknown]
  - Spinal operation [Unknown]
  - Knee operation [Unknown]
  - Pain [Unknown]
